FAERS Safety Report 8818216 (Version 2)
Quarter: 2012Q4

REPORT INFORMATION
  Report Type: 
  Country: US (occurrence: US)
  Receive Date: 20121001
  Receipt Date: 20121022
  Transmission Date: 20130627
  Serious: Yes (Other)
  Sender: FDA-Public Use
  Company Number: US-PFIZER INC-2012218961

PATIENT
  Age: 21 Month
  Sex: Male
  Weight: 14.06 kg

DRUGS (2)
  1. BENEFIX [Suspect]
     Indication: FACTOR IX DEFICIENCY
     Dosage: UNK
     Route: 042
     Dates: start: 201205
  2. BENEFIX [Suspect]
     Indication: HAEMORRHAGE
     Dosage: 60 IU/kg, once (on demand)
     Route: 042
     Dates: start: 20120824, end: 20120824

REACTIONS (3)
  - Anaphylactic reaction [Recovered/Resolved]
  - Factor IX inhibition [Unknown]
  - Cough [Recovered/Resolved]
